FAERS Safety Report 8480573 (Version 7)
Quarter: 2014Q3

REPORT INFORMATION
  Report Type: Spontaneous
  Country: US (occurrence: US)
  Receive Date: 20120328
  Receipt Date: 20140911
  Transmission Date: 20150326
  Serious: Yes (Hospitalization, Disabling, Other)
  Sender: FDA-Public Use
  Company Number: US-009507513-1203USA03298

PATIENT
  Sex: Female
  Weight: 48.73 kg

DRUGS (13)
  1. OMEGA-3 MARINE TRIGLYCERIDES [Concomitant]
     Active Substance: FISH OIL
     Dosage: 1000 MG, UNK
     Route: 048
  2. METFORMIN [Concomitant]
     Active Substance: METFORMIN HYDROCHLORIDE
     Indication: DIABETES MELLITUS
     Dosage: 1000 MG, UNK
     Dates: start: 1997
  3. ACTOS [Concomitant]
     Active Substance: PIOGLITAZONE HYDROCHLORIDE
     Indication: DIABETES MELLITUS
     Dosage: 45 MG, UNK
     Dates: start: 2002, end: 201203
  4. CENTRUM SILVER [Concomitant]
     Active Substance: VITAMINS
     Route: 048
  5. DETROL [Concomitant]
     Active Substance: TOLTERODINE TARTRATE
     Dosage: 4 MG, UNK
     Route: 048
  6. AMITRIPTYLIN [Concomitant]
     Active Substance: AMITRIPTYLINE
     Indication: STRESS
     Dosage: UNK
     Dates: start: 1982
  7. PRANDIN (DEFLAZACORT) [Concomitant]
     Active Substance: DEFLAZACORT
     Indication: DIABETES MELLITUS
     Dosage: UNK
     Dates: start: 2002
  8. ASCORBIC ACID. [Concomitant]
     Active Substance: ASCORBIC ACID
     Dosage: 500 MG, UNK
     Route: 048
  9. CIMETIDINE [Concomitant]
     Active Substance: CIMETIDINE
     Dosage: 40 MG, UNK
     Route: 048
  10. FOSAMAX [Suspect]
     Active Substance: ALENDRONATE SODIUM
     Indication: BONE LOSS
     Dosage: 70 MG, QW
     Route: 048
     Dates: start: 1999, end: 200707
  11. FOSAMAX PLUS D [Suspect]
     Active Substance: ALENDRONATE SODIUM\CHOLECALCIFEROL
     Indication: BONE LOSS
     Dosage: 70/2800 MG, UNK
     Route: 048
     Dates: end: 20100317
  12. NASONEX [Concomitant]
     Active Substance: MOMETASONE FUROATE
     Dosage: 2 DF, QD
     Route: 045
  13. CALCIUM (UNSPECIFIED) (+) PHYTONADIONE (+) VITAMIN D (UNSPECIFIED) [Concomitant]
     Dosage: 500 MG, UNK
     Route: 048

REACTIONS (31)
  - Haemorrhoids [Unknown]
  - Eczema [Unknown]
  - Eczema nummular [Unknown]
  - Varicose vein [Unknown]
  - Post-traumatic headache [Unknown]
  - Polyp [Unknown]
  - Fracture [Unknown]
  - Blood cholesterol increased [Unknown]
  - Hyperlipidaemia [Unknown]
  - Skin infection [Unknown]
  - Dermatitis contact [Recovered/Resolved]
  - Tooth extraction [Unknown]
  - Hypersensitivity [Unknown]
  - Femur fracture [Not Recovered/Not Resolved]
  - Scoliosis [Unknown]
  - Cellulitis [Recovering/Resolving]
  - Stasis dermatitis [Unknown]
  - Fall [Unknown]
  - Arthritis [Unknown]
  - Open reduction of fracture [Unknown]
  - Osteoporosis [Not Recovered/Not Resolved]
  - Skin infection [Unknown]
  - Skin abrasion [Recovering/Resolving]
  - Cataract [Unknown]
  - Bladder disorder [Unknown]
  - Low turnover osteopathy [Not Recovered/Not Resolved]
  - Diverticulum [Unknown]
  - Decreased appetite [Unknown]
  - Excoriation [Unknown]
  - Hypertension [Not Recovered/Not Resolved]
  - Arthralgia [Unknown]

NARRATIVE: CASE EVENT DATE: 2001
